FAERS Safety Report 18073422 (Version 3)
Quarter: 2020Q3

REPORT INFORMATION
  Report Type: Spontaneous
  Country: US (occurrence: US)
  Receive Date: 20200727
  Receipt Date: 20200825
  Transmission Date: 20201103
  Serious: No
  Sender: FDA-Public Use
  Company Number: US-GLAXOSMITHKLINE-US2020AMR141436

PATIENT
  Sex: Female

DRUGS (2)
  1. ZEJULA [Suspect]
     Active Substance: NIRAPARIB
     Indication: OVARIAN CANCER
     Dosage: 300 MG, QD (QPM)
     Dates: start: 20200709
  2. ZEJULA [Suspect]
     Active Substance: NIRAPARIB
     Dosage: 300 MG, QD
     Route: 048

REACTIONS (10)
  - Heart rate increased [Unknown]
  - Feeling jittery [Unknown]
  - Hot flush [Unknown]
  - Blood pressure increased [Unknown]
  - Anxiety [Unknown]
  - Constipation [Unknown]
  - Sleep disorder [Unknown]
  - Dry mouth [Unknown]
  - Dyspnoea [Unknown]
  - Product monitoring error [Unknown]
